FAERS Safety Report 16838097 (Version 3)
Quarter: 2020Q1

REPORT INFORMATION
  Report Type: Spontaneous
  Country: US (occurrence: US)
  Receive Date: 20190923
  Receipt Date: 20200324
  Transmission Date: 20200409
  Serious: No
  Sender: FDA-Public Use
  Company Number: US-ASTRAZENECA-2019SF29605

PATIENT
  Age: 919 Month
  Sex: Male
  Weight: 97.5 kg

DRUGS (3)
  1. METFORMIN [Concomitant]
     Active Substance: METFORMIN HYDROCHLORIDE
     Indication: TYPE 2 DIABETES MELLITUS
     Route: 048
  2. BYDUREON BCISE [Suspect]
     Active Substance: EXENATIDE
     Indication: TYPE 2 DIABETES MELLITUS
     Route: 058
     Dates: start: 2018
  3. BYDYREON SDT [Concomitant]
     Indication: TYPE 2 DIABETES MELLITUS
     Route: 058
     Dates: end: 2018

REACTIONS (7)
  - Injection site haemorrhage [Unknown]
  - Skin disorder [Unknown]
  - Intentional device misuse [Unknown]
  - Device leakage [Unknown]
  - Needle issue [Unknown]
  - Drug delivery system malfunction [Unknown]
  - Device issue [Unknown]

NARRATIVE: CASE EVENT DATE: 201907
